FAERS Safety Report 7843635-6 (Version None)
Quarter: 2011Q4

REPORT INFORMATION
  Report Type: 
  Country: None (occurrence: None)
  Receive Date: 20111025
  Receipt Date: 20111018
  Transmission Date: 20120403
  Serious: Yes (Hospitalization)
  Sender: FDA-Public Use
  Company Number: US-ROCHE-1005645

PATIENT
  Sex: Female

DRUGS (6)
  1. MULTI-VITAMIN [Concomitant]
  2. VITAMIN B-12 [Concomitant]
  3. PEGINTERFERON ALFA-2A [Suspect]
     Indication: HEPATITIS C
     Route: 058
     Dates: start: 20110519, end: 20110825
  4. SONATA [Concomitant]
  5. COPEGUS [Suspect]
     Indication: HEPATITIS C
     Route: 048
     Dates: start: 20110519, end: 20110528
  6. BMS-650032 (HCV NS3 PROTEASE INHIBITOR) [Suspect]
     Indication: HEPATITIS C
     Route: 048
     Dates: start: 20110519, end: 20110828

REACTIONS (3)
  - BACTERAEMIA [None]
  - PYELONEPHRITIS [None]
  - NEPHROLITHIASIS [None]
